FAERS Safety Report 7894121-9 (Version None)
Quarter: 2011Q4

REPORT INFORMATION
  Report Type: 
  Country: None (occurrence: None)
  Receive Date: 20111104
  Receipt Date: 20111028
  Transmission Date: 20120403
  Serious: No
  Sender: FDA-Public Use
  Company Number: US-PFIZER INC-2011265728

PATIENT
  Sex: Female

DRUGS (2)
  1. ALANTA [Concomitant]
     Dosage: UNK
  2. XALKORI [Suspect]
     Indication: LUNG NEOPLASM MALIGNANT
     Dosage: 250 MG, 2X/DAY
     Route: 048

REACTIONS (6)
  - OCULAR DISCOMFORT [None]
  - LUNG NEOPLASM MALIGNANT [None]
  - NAUSEA [None]
  - DIARRHOEA [None]
  - FLATULENCE [None]
  - DISEASE PROGRESSION [None]
